FAERS Safety Report 8823591 (Version 5)
Quarter: 2013Q4

REPORT INFORMATION
  Report Type: Report from Study
  Country: JP (occurrence: JP)
  Receive Date: 20121003
  Receipt Date: 20131227
  Transmission Date: 20140711
  Serious: Yes (Hospitalization)
  Sender: FDA-Public Use
  Company Number: JP-VERTEX PHARMACEUTICAL INC.-AE-2012-011727

PATIENT
  Age: 47 Year
  Sex: Male

DRUGS (18)
  1. VX-950 (TELAPREVIR) [Suspect]
     Indication: CHRONIC HEPATITIS C
     Dosage: 2250 MG, QD
     Route: 048
     Dates: start: 20120611, end: 20120613
  2. VX-950 (TELAPREVIR) [Suspect]
     Dosage: 1500 MG, QD
     Route: 048
     Dates: start: 20120614, end: 20120731
  3. REBETOL [Suspect]
     Indication: CHRONIC HEPATITIS C
     Dosage: 800 MG, QD
     Route: 048
     Dates: start: 20120611, end: 20120613
  4. REBETOL [Suspect]
     Dosage: 600 MG, QD
     Route: 048
     Dates: start: 20120614, end: 20120701
  5. REBETOL [Suspect]
     Dosage: 200 MG, QD
     Route: 048
     Dates: start: 20120702, end: 20120802
  6. PEGINTERFERON ALFA-2B [Concomitant]
     Dosage: 1.5 ?G/KG, QW
     Route: 058
     Dates: start: 20120611, end: 20120731
  7. JANUVIA [Concomitant]
     Dosage: 100 MG, QD
     Route: 048
     Dates: end: 20120801
  8. OLMETEC [Concomitant]
     Dosage: 20 MG, UNK
     Route: 048
  9. SELBEX [Concomitant]
     Dosage: 150 MG, UNK
     Route: 048
     Dates: start: 20120611, end: 20120801
  10. LOXONIN [Concomitant]
     Dosage: 180 MG, QD
     Route: 048
     Dates: start: 20120611, end: 20120801
  11. TALION [Concomitant]
     Dosage: 20 MG, QD
     Route: 048
     Dates: start: 20120611, end: 20120804
  12. OMEPRAL [Concomitant]
     Dosage: 20 MG, QD
     Route: 048
     Dates: start: 20120611
  13. FLUITRAN [Concomitant]
     Dosage: 2 MG, QD
     Route: 048
     Dates: start: 20120709, end: 20120801
  14. AMARYL [Concomitant]
     Dosage: 3 MG, UNK
     Route: 048
     Dates: end: 20120801
  15. OMEPRAZON [Concomitant]
     Dosage: 20 MG, QD
     Route: 048
     Dates: end: 20120801
  16. OMEPRAZON [Concomitant]
     Dosage: 20 MG, QD
     Route: 048
     Dates: start: 20120903
  17. NEXIUM [Concomitant]
     Dosage: 20 MG, QD
     Route: 048
     Dates: start: 20120802, end: 20120902
  18. INSULIN [Concomitant]
     Dosage: 15 DF, QD
     Route: 058
     Dates: start: 20120802

REACTIONS (1)
  - Rash [Recovered/Resolved]
